FAERS Safety Report 8546910-5 (Version None)
Quarter: 2012Q3

REPORT INFORMATION
  Report Type: 
  Country: None (occurrence: None)
  Receive Date: 20120727
  Receipt Date: 20120118
  Transmission Date: 20120928
  Serious: No
  Sender: FDA-Public Use
  Company Number: US-ASTRAZENECA-2012SE03695

PATIENT
  Age: 41 Year
  Sex: Male
  Weight: 68 kg

DRUGS (5)
  1. WELBUTRINE SR [Concomitant]
  2. SEROQUEL [Suspect]
     Indication: SLEEP DISORDER
     Route: 048
     Dates: start: 20111001
  3. SULFAMAX [Concomitant]
  4. GABAPENTIN [Concomitant]
  5. LORAZEPAM [Concomitant]

REACTIONS (2)
  - OFF LABEL USE [None]
  - RASH PAPULAR [None]
